FAERS Safety Report 9475287 (Version 3)
Quarter: 2013Q4

REPORT INFORMATION
  Report Type: Report from Study
  Country: DE (occurrence: DE)
  Receive Date: 20130826
  Receipt Date: 20131018
  Transmission Date: 20140711
  Serious: Yes (Hospitalization)
  Sender: FDA-Public Use
  Company Number: DE-009507513-1308DEU009835

PATIENT
  Age: 51 Year
  Sex: Male
  Weight: 88.5 kg

DRUGS (3)
  1. BOCEPREVIR [Suspect]
     Indication: CHRONIC HEPATITIS C
     Dosage: 800 MG, TID (STRENGTH 200 MG)
     Route: 048
     Dates: start: 20130515, end: 20130821
  2. PEGINTRON [Suspect]
     Indication: CHRONIC HEPATITIS C
     Dosage: 150 MICROGRAM, QW
     Dates: start: 20130419, end: 20130821
  3. REBETOL [Suspect]
     Indication: CHRONIC HEPATITIS C
     Dosage: 600 MG, BID, FORMULATION NOT REPORTED
     Route: 048
     Dates: start: 20130419, end: 20130821

REACTIONS (1)
  - Psychotic disorder [Recovered/Resolved]
